FAERS Safety Report 9168280 (Version 1)
Quarter: 2013Q1

REPORT INFORMATION
  Report Type: Spontaneous
  Country: US (occurrence: US)
  Receive Date: 20130318
  Receipt Date: 20130318
  Transmission Date: 20140127
  Serious: Yes (Other)
  Sender: FDA-Public Use
  Company Number: PHEH2013US006000

PATIENT
  Sex: Female

DRUGS (1)
  1. VOLTAREN [Suspect]
     Route: 048

REACTIONS (1)
  - Road traffic accident [Unknown]
